FAERS Safety Report 9479297 (Version 1)
Quarter: 2013Q3

REPORT INFORMATION
  Report Type: Spontaneous
  Country: FR (occurrence: FR)
  Receive Date: 20130827
  Receipt Date: 20130827
  Transmission Date: 20140515
  Serious: Yes (Other)
  Sender: FDA-Public Use
  Company Number: FR-WATSON-2013-14954

PATIENT
  Age: 45 Year
  Sex: Male

DRUGS (3)
  1. BACLOFEN (UNKNOWN) [Suspect]
     Indication: SUICIDE ATTEMPT
     Dosage: 400 MG, UNK
     Route: 048
  2. STILNOX [Suspect]
     Indication: SUICIDE ATTEMPT
     Dosage: 10 MG, UNK
     Route: 065
  3. IXEL /01054401/ [Suspect]
     Indication: SUICIDE ATTEMPT
     Dosage: UNK
     Route: 065

REACTIONS (1)
  - Depressed level of consciousness [Unknown]
